FAERS Safety Report 21916492 (Version 18)
Quarter: 2025Q3

REPORT INFORMATION
  Report Type: Report from Study
  Country: US (occurrence: US)
  Receive Date: 20230126
  Receipt Date: 20250919
  Transmission Date: 20251021
  Serious: Yes (Hospitalization, Other)
  Sender: TAKEDA
  Company Number: US-TAKEDA-2023TUS009175

PATIENT
  Age: 78 Year
  Sex: Female
  Weight: 90 kg

DRUGS (35)
  1. HUMAN IMMUNOGLOBULIN G [Suspect]
     Active Substance: HUMAN IMMUNOGLOBULIN G
     Indication: Immunodeficiency common variable
     Dosage: 20 GRAM, Q2WEEKS
  2. HUMAN IMMUNOGLOBULIN G [Suspect]
     Active Substance: HUMAN IMMUNOGLOBULIN G
     Dosage: 15 GRAM, Q2WEEKS
  3. Coq [Concomitant]
  4. NAPROXEN [Concomitant]
     Active Substance: NAPROXEN
  5. MAGNESIUM [Concomitant]
     Active Substance: MAGNESIUM
  6. CARVEDILOL [Concomitant]
     Active Substance: CARVEDILOL
  7. ZYRTEC [Concomitant]
     Active Substance: CETIRIZINE HYDROCHLORIDE
  8. GARLIC [Concomitant]
     Active Substance: GARLIC
  9. CALCIUM [Concomitant]
     Active Substance: CALCIUM
  10. DICYCLOMINE HYDROCHLORIDE [Concomitant]
     Active Substance: DICYCLOMINE HYDROCHLORIDE
  11. ATIVAN [Concomitant]
     Active Substance: LORAZEPAM
  12. PEPCID [Concomitant]
     Active Substance: FAMOTIDINE
  13. ANORO ELLIPTA [Concomitant]
     Active Substance: UMECLIDINIUM BROMIDE\VILANTEROL TRIFENATATE
  14. LEVOTHYROXINE [Concomitant]
     Active Substance: LEVOTHYROXINE
  15. ALBUTEROL SULFATE [Concomitant]
     Active Substance: ALBUTEROL SULFATE
  16. AMBIEN [Concomitant]
     Active Substance: ZOLPIDEM TARTRATE
  17. CRESTOR [Concomitant]
     Active Substance: ROSUVASTATIN CALCIUM
  18. NAPROXEN SODIUM [Concomitant]
     Active Substance: NAPROXEN SODIUM
  19. VALACYCLOVIR [Concomitant]
     Active Substance: VALACYCLOVIR HYDROCHLORIDE
  20. DIPHENHYDRAMINE [Concomitant]
     Active Substance: DIPHENHYDRAMINE
  21. LIDOCAINE\PRILOCAINE [Concomitant]
     Active Substance: LIDOCAINE\PRILOCAINE
  22. EPINEPHRINE [Concomitant]
     Active Substance: EPINEPHRINE
  23. SINGULAIR [Concomitant]
     Active Substance: MONTELUKAST SODIUM
  24. METHOCARBAMOL [Concomitant]
     Active Substance: METHOCARBAMOL
  25. SENNA PLUS [Concomitant]
     Active Substance: DOCUSATE SODIUM\SENNOSIDES\SENNOSIDES A AND B
  26. METOPROLOL [Concomitant]
     Active Substance: METOPROLOL
  27. DEXILANT [Concomitant]
     Active Substance: DEXLANSOPRAZOLE
  28. VENTOLIN [Concomitant]
     Active Substance: ALBUTEROL SULFATE
  29. ADVAIR HFA [Concomitant]
     Active Substance: FLUTICASONE PROPIONATE\SALMETEROL XINAFOATE
  30. DIPHENHYDRAMINE HYDROCHLORIDE [Concomitant]
     Active Substance: DIPHENHYDRAMINE HYDROCHLORIDE
  31. XARELTO [Concomitant]
     Active Substance: RIVAROXABAN
  32. TRAMADOL HCL [Concomitant]
     Active Substance: TRAMADOL HYDROCHLORIDE
  33. PREDNISOLONE ACETATE [Concomitant]
     Active Substance: PREDNISOLONE ACETATE
  34. LEVOTHYROXINE SODIUM [Concomitant]
     Active Substance: LEVOTHYROXINE SODIUM
  35. OMEPRAZOLE [Concomitant]
     Active Substance: OMEPRAZOLE

REACTIONS (24)
  - Haematemesis [Unknown]
  - Colitis [Unknown]
  - Pulmonary thrombosis [Recovered/Resolved]
  - Thrombosis [Recovered/Resolved]
  - Cerebrovascular accident [Recovered/Resolved]
  - Ocular hyperaemia [Unknown]
  - Haemoptysis [Unknown]
  - Infusion site erythema [Unknown]
  - Infusion site pruritus [Not Recovered/Not Resolved]
  - Weight decreased [Unknown]
  - Sinus disorder [Unknown]
  - Bronchitis [Recovered/Resolved]
  - COVID-19 [Recovered/Resolved]
  - Weight fluctuation [Unknown]
  - Product dose omission issue [Recovered/Resolved]
  - Inappropriate schedule of product administration [Recovered/Resolved]
  - Sinusitis [Recovered/Resolved]
  - Abdominal discomfort [Recovered/Resolved]
  - Paraesthesia [Unknown]
  - Influenza like illness [Recovered/Resolved]
  - Cough [Recovered/Resolved]
  - Myalgia [Unknown]
  - Infusion site pain [Not Recovered/Not Resolved]
  - Infusion site urticaria [Unknown]

NARRATIVE: CASE EVENT DATE: 20240130
